FAERS Safety Report 4846335-X (Version None)
Quarter: 2005Q4

REPORT INFORMATION
  Report Type: 
  Country: None (occurrence: None)
  Receive Date: 20051206
  Receipt Date: 20051129
  Transmission Date: 20060501
  Serious: Yes (Other)
  Sender: FDA-Public Use
  Company Number: BE-ROCHE-426423

PATIENT
  Age: 41 Year
  Sex: Male
  Weight: 93 kg

DRUGS (4)
  1. FUZEON [Suspect]
     Route: 058
     Dates: start: 20041108
  2. DIDANOSINE [Concomitant]
  3. RITONAVIR [Concomitant]
  4. TIPRANAVIR [Concomitant]

REACTIONS (1)
  - ANAL ABSCESS [None]
